FAERS Safety Report 5270272-2 (Version None)
Quarter: 2007Q1

REPORT INFORMATION
  Report Type: 
  Country: None (occurrence: None)
  Receive Date: 20070320
  Receipt Date: 20070311
  Transmission Date: 20070707
  Serious: No
  Sender: FDA-Public Use
  Company Number: LB-ELI_LILLY_AND_COMPANY-LB200703002493

PATIENT
  Sex: Male

DRUGS (1)
  1. TADALAFIL [Suspect]
     Route: 048

REACTIONS (1)
  - VISUAL DISTURBANCE [None]
